FAERS Safety Report 4360355-3 (Version None)
Quarter: 2004Q2

REPORT INFORMATION
  Report Type: 
  Country: None (occurrence: None)
  Receive Date: 20040519
  Receipt Date: 20020924
  Transmission Date: 20050107
  Serious: Yes (Life-Threatening, Hospitalization)
  Sender: FDA-Public Use
  Company Number: US-BRISTOL-MYERS SQUIBB COMPANY-12050936

PATIENT
  Age: 27 Year
  Sex: Male
  Weight: 79 kg

DRUGS (10)
  1. STAVUDINE [Suspect]
     Dosage: TEMPORARILY HELD ON 9/20/02 + 24-APR-2004
     Route: 048
     Dates: start: 20001113
  2. LOPINAVIR + RITONAVIR [Suspect]
     Dosage: TEMPORARILY HELD ON 9/20/02 + 24-APR-2004
     Route: 048
     Dates: start: 20001113
  3. COVIRACIL [Suspect]
     Dosage: TEMPORARILY PLACED ON HOLD ON 9/20/02 + 24-APR-2004
     Route: 048
     Dates: start: 20001113
  4. LAMICTAL [Suspect]
     Dosage: HELD ON 24-APR-2004
     Dates: start: 20021021
  5. WELLBUTRIN [Concomitant]
  6. DEPAKOTE [Concomitant]
     Dates: start: 20010101
  7. ZYPREXA [Concomitant]
     Dosage: 2 MONTHS IN 2000, THEN SINCE JUNE 25, 2001.
     Dates: start: 20000101
  8. DOXYCYCLINE [Concomitant]
  9. LOMOTIL [Concomitant]
  10. TRIAZIDE [Concomitant]
     Route: 061

REACTIONS (2)
  - ASPARTATE AMINOTRANSFERASE INCREASED [None]
  - BLOOD CREATINE PHOSPHOKINASE INCREASED [None]
